FAERS Safety Report 7224192-4 (Version None)
Quarter: 2011Q1

REPORT INFORMATION
  Report Type: 
  Country: None (occurrence: None)
  Receive Date: 20110113
  Receipt Date: 20110110
  Transmission Date: 20110831
  Serious: Yes (Other)
  Sender: FDA-Public Use
  Company Number: US-BAYER-2011-003473

PATIENT
  Sex: Female

DRUGS (2)
  1. YASMIN [Suspect]
     Indication: PRODUCT USED FOR UNKNOWN INDICATION
     Dosage: UNK
     Dates: start: 20050801, end: 20081101
  2. OCELLA [Suspect]
     Indication: PRODUCT USED FOR UNKNOWN INDICATION
     Dosage: UNK
     Dates: start: 20081101, end: 20090101

REACTIONS (7)
  - TRANSVERSE SINUS THROMBOSIS [None]
  - INTRACRANIAL VENOUS SINUS THROMBOSIS [None]
  - SUPERIOR SAGITTAL SINUS THROMBOSIS [None]
  - JUGULAR VEIN THROMBOSIS [None]
  - SCOTOMA [None]
  - PAPILLOEDEMA [None]
  - INTRACRANIAL PRESSURE INCREASED [None]
